FAERS Safety Report 5269477-6 (Version None)
Quarter: 2007Q1

REPORT INFORMATION
  Report Type: 
  Country: None (occurrence: None)
  Receive Date: 20070314
  Receipt Date: 20070219
  Transmission Date: 20070707
  Serious: Yes (Other)
  Sender: FDA-Public Use
  Company Number: 0490042

PATIENT
  Age: 16 Year
  Sex: Female
  Weight: 61.6892 kg

DRUGS (2)
  1. ZETIA [Suspect]
     Dosage: 10 MG/DAILY/PO
     Route: 048
     Dates: start: 20070208, end: 20070213
  2. ZOCOR [Suspect]
     Dosage: 40 MG/DAILY/PO
     Route: 048
     Dates: start: 20060208, end: 20060213

REACTIONS (2)
  - BLOOD CREATINE PHOSPHOKINASE INCREASED [None]
  - BLOOD THYROID STIMULATING HORMONE INCREASED [None]
